FAERS Safety Report 4791576-3 (Version None)
Quarter: 2005Q4

REPORT INFORMATION
  Report Type: 
  Country: None (occurrence: None)
  Receive Date: 20051007
  Receipt Date: 20050404
  Transmission Date: 20060501
  Serious: No
  Sender: FDA-Public Use
  Company Number: US-BRISTOL-MYERS SQUIBB COMPANY-12919627

PATIENT
  Age: 60 Year
  Sex: Female
  Weight: 63 kg

DRUGS (4)
  1. AVAPRO [Suspect]
     Dates: start: 20030601
  2. SYNTHROID [Concomitant]
  3. TIMOLOL MALEATE [Concomitant]
     Indication: GLAUCOMA
  4. XALATAN [Concomitant]
     Indication: GLAUCOMA

REACTIONS (1)
  - NAIL DISORDER [None]
